FAERS Safety Report 8305312-7 (Version None)
Quarter: 2012Q2

REPORT INFORMATION
  Report Type: 
  Country: None (occurrence: None)
  Receive Date: 20120423
  Receipt Date: 20120416
  Transmission Date: 20120825
  Serious: Yes (Hospitalization)
  Sender: FDA-Public Use
  Company Number: US-BAYER-2012-030236

PATIENT
  Age: 65 Year
  Sex: Female

DRUGS (12)
  1. AVELOX [Suspect]
     Indication: PNEUMONIA
     Dosage: 400 MG, QD
     Route: 048
     Dates: start: 20120213, end: 20120227
  2. GLUCOPHAGE [Concomitant]
     Indication: TYPE 2 DIABETES MELLITUS
     Dosage: 850 MG, BID
     Route: 048
  3. ADVAIR DISKUS 100/50 [Concomitant]
     Dosage: 500/50 ONE INHALATION/BID
  4. COUGH AND COLD PREPARATIONS [Concomitant]
  5. ANTIHISTAMINES [Concomitant]
  6. LOPRESSOR [Concomitant]
     Dosage: 25 MG, BID
  7. CALCIUM CARBONATE [Concomitant]
     Dosage: 600 MG, QD
     Route: 048
  8. LOTREL [Concomitant]
     Dosage: 1 DF, QD
     Route: 048
  9. CALAMINE [Concomitant]
  10. ASPIRIN [Concomitant]
     Dosage: 81 MG, QD
     Route: 048
  11. ANCEF [Suspect]
     Indication: PRURITUS
  12. LIPITOR [Concomitant]
     Dosage: 10 MG, QD
     Route: 048

REACTIONS (9)
  - CHROMATURIA [None]
  - JAUNDICE [None]
  - HEPATITIS [None]
  - FATIGUE [None]
  - DECREASED APPETITE [None]
  - RASH PAPULAR [None]
  - FAECES PALE [None]
  - PRURITUS [None]
  - WEIGHT DECREASED [None]
